FAERS Safety Report 8243093-6 (Version None)
Quarter: 2012Q1

REPORT INFORMATION
  Report Type: 
  Country: None (occurrence: None)
  Receive Date: 20120329
  Receipt Date: 20110331
  Transmission Date: 20120608
  Serious: No
  Sender: FDA-Public Use
  Company Number: US-MYLANLABS-2011S1003617

PATIENT
  Age: 8 Year
  Sex: Male
  Weight: 37.65 kg

DRUGS (2)
  1. ALBUTEROL SULATE [Suspect]
     Indication: ASTHMA
     Route: 055
     Dates: start: 20110214, end: 20110216
  2. PULMICORT [Concomitant]
     Indication: ASTHMA

REACTIONS (3)
  - CHEST PAIN [None]
  - WHEEZING [None]
  - DRUG EFFECT DECREASED [None]
